FAERS Safety Report 15442900 (Version 1)
Quarter: 2018Q3

REPORT INFORMATION
  Report Type: Report from Study
  Country: IT (occurrence: IT)
  Receive Date: 20180928
  Receipt Date: 20180928
  Transmission Date: 20181010
  Serious: Yes (Death, Hospitalization)
  Sender: FDA-Public Use
  Company Number: IT-PFIZER INC-2018353012

PATIENT
  Age: 72 Year
  Sex: Male

DRUGS (5)
  1. ALIMTA [Suspect]
     Active Substance: PEMETREXED DISODIUM
     Indication: NON-SMALL CELL LUNG CANCER
     Dosage: 1000 MG, DAY 1 EVERY 3 WEEKS
     Route: 041
     Dates: start: 20180525, end: 20180718
  2. CITALOPRAM [Concomitant]
     Active Substance: CITALOPRAM HYDROBROMIDE
     Indication: PROPHYLAXIS
     Dosage: 8 GTT, DAILY
     Route: 048
     Dates: start: 20180820, end: 20180826
  3. AVELUMAB [Suspect]
     Active Substance: AVELUMAB
     Indication: NON-SMALL CELL LUNG CANCER
     Dosage: 800 MG, DAY 1, EVERY 3 WEEKS
     Route: 041
     Dates: start: 20180525, end: 20180718
  4. SOLDESAM [Concomitant]
     Active Substance: DEXAMETHASONE
     Indication: SUPPORTIVE CARE
     Dosage: 4 MG, DAILY
     Route: 042
     Dates: start: 20180813
  5. CARBOPLATIN. [Suspect]
     Active Substance: CARBOPLATIN
     Indication: NON-SMALL CELL LUNG CANCER
     Dosage: AUC 5, DAY 1 EVERY 3 WEEKS
     Route: 041
     Dates: start: 20180525, end: 20180718

REACTIONS (1)
  - Cognitive disorder [Not Recovered/Not Resolved]

NARRATIVE: CASE EVENT DATE: 20180821
